FAERS Safety Report 5353010-4 (Version None)
Quarter: 2007Q2

REPORT INFORMATION
  Report Type: 
  Country: None (occurrence: None)
  Receive Date: 20070611
  Receipt Date: 20070530
  Transmission Date: 20071010
  Serious: Yes (Death, Life-Threatening, Hospitalization)
  Sender: FDA-Public Use
  Company Number: CH-PFIZER INC-2007037356

PATIENT
  Sex: Female
  Weight: 76 kg

DRUGS (1)
  1. SU-011,248 [Suspect]
     Route: 048
     Dates: start: 20070418, end: 20070503

REACTIONS (5)
  - ADRENAL INSUFFICIENCY [None]
  - ARTHRALGIA [None]
  - HAEMORRHAGE [None]
  - INFECTION [None]
  - MUCOSAL INFLAMMATION [None]
